FAERS Safety Report 8577451 (Version 2)
Quarter: 2012Q4

REPORT INFORMATION
  Report Type: 
  Country: JP (occurrence: JP)
  Receive Date: 20120524
  Receipt Date: 20121205
  Transmission Date: 20130627
  Serious: Yes (Death)
  Sender: FDA-Public Use
  Company Number: JP-JNJFOC-20120513986

PATIENT
  Age: 52 Year
  Sex: Male

DRUGS (9)
  1. RISPERDAL CONSTA [Suspect]
     Indication: PRODUCT USED FOR UNKNOWN INDICATION
     Route: 030
     Dates: start: 20111128, end: 20120502
  2. INVEGA [Suspect]
     Indication: PRODUCT USED FOR UNKNOWN INDICATION
     Route: 048
     Dates: start: 20120502
  3. RIVOTRIL [Concomitant]
     Route: 048
  4. SILECE [Concomitant]
     Route: 048
  5. ROZEREM [Concomitant]
     Route: 048
  6. HALCION [Concomitant]
     Route: 048
  7. HIRNAMIN (LEVOPROMAZINE MALEATE) [Concomitant]
     Route: 048
  8. LIPITOR [Concomitant]
     Route: 048
  9. FERROMIA [Concomitant]
     Route: 048

REACTIONS (2)
  - Death [Fatal]
  - Suicidal ideation [Unknown]
